FAERS Safety Report 5604658-0 (Version None)
Quarter: 2008Q1

REPORT INFORMATION
  Report Type: 
  Country: None (occurrence: None)
  Receive Date: 20080124
  Receipt Date: 20080124
  Transmission Date: 20080703
  Serious: Yes (Hospitalization)
  Sender: FDA-Public Use
  Company Number: None

PATIENT
  Age: 72 Year
  Sex: Male
  Weight: 97.0698 kg

DRUGS (1)
  1. VYTORIN [Suspect]
     Indication: HIGH DENSITY LIPOPROTEIN INCREASED
     Dosage: 1 AT BEDTIME PO
     Route: 048
     Dates: start: 20070919, end: 20071230

REACTIONS (8)
  - CHOLECYSTITIS [None]
  - CHOLELITHIASIS [None]
  - GASTRIC DISORDER [None]
  - HEPATITIS [None]
  - LUNG DISORDER [None]
  - OESOPHAGITIS [None]
  - PANCREATITIS [None]
  - PNEUMONIA [None]
